FAERS Safety Report 9266826 (Version 1)
Quarter: 2013Q2

REPORT INFORMATION
  Report Type: Spontaneous
  Country: US (occurrence: US)
  Receive Date: 20130502
  Receipt Date: 20130502
  Transmission Date: 20140414
  Serious: Yes (Hospitalization)
  Sender: FDA-Public Use
  Company Number: US-BAYER-2013-053755

PATIENT
  Age: 26 Year
  Sex: Female

DRUGS (7)
  1. YAZ [Suspect]
  2. YASMIN [Suspect]
  3. OCELLA [Suspect]
  4. MOTRIN [Concomitant]
  5. FERROUS SULFATE [Concomitant]
  6. COLACE [Concomitant]
  7. PRENATAL VITAMINS [Concomitant]

REACTIONS (1)
  - Pulmonary embolism [Recovered/Resolved]
